FAERS Safety Report 20080073 (Version 2)
Quarter: 2021Q4

REPORT INFORMATION
  Report Type: Spontaneous
  Country: DE (occurrence: DE)
  Receive Date: 20211117
  Receipt Date: 20211122
  Transmission Date: 20220304
  Serious: Yes (Hospitalization)
  Sender: FDA-Public Use
  Company Number: DE-ADRED-07061-03

PATIENT
  Age: 20 Year
  Sex: Female

DRUGS (9)
  1. GABAPENTIN [Suspect]
     Active Substance: GABAPENTIN
     Indication: Product used for unknown indication
     Dosage: 1200 MILLIGRAM, BID
     Route: 048
  2. FENTANYL [Suspect]
     Active Substance: FENTANYL
     Indication: Product used for unknown indication
     Dosage: 50 MICROGRAM, TID
     Route: 062
  3. FOLIC ACID [Concomitant]
     Active Substance: FOLIC ACID
     Dosage: 5 MILLIGRAM, QD (5 MG, 1-0-0-0, TABLETTEN)
     Route: 048
  4. PANTOPRAZOLE [Concomitant]
     Active Substance: PANTOPRAZOLE
     Dosage: 40 MILLIGRAM, BID (40 MG, 1-0-1-0, TABLETTEN)
     Route: 048
  5. METOCLOPRAMID                      /00041901/ [Concomitant]
     Dosage: 10 MILLIGRAM, TID (10 MG, 1-1-1-0, TABLETTEN)
     Route: 048
  6. PROMETHAZINE [Concomitant]
     Active Substance: PROMETHAZINE HYDROCHLORIDE
     Dosage: 3 MILLIGRAM, BID (3 MG, 1-0-1-0, TABLETTEN)
     Route: 048
  7. EISENSULFAT LOMAPHARM [Concomitant]
     Dosage: 100 MILLIGRAM, QD (100 MG, 1-0-0-0, KAPSELN)
     Route: 048
  8. ONDANSETRON [Concomitant]
     Active Substance: ONDANSETRON
     Dosage: 8 MILLIGRAM, BID (8 MG, 1-0-1-0, SCHMELZTABLETTEN)
     Route: 060
  9. FERROUS SULFATE [Concomitant]
     Active Substance: FERROUS SULFATE
     Dosage: 100 MILLIGRAM, QD (100 MG, 1-0-0-0)
     Route: 048

REACTIONS (3)
  - Nausea [Unknown]
  - Vomiting [Unknown]
  - Product prescribing error [Unknown]
